FAERS Safety Report 6584529 (Version 6)
Quarter: 2013Q2

REPORT INFORMATION
  Report Type: Report from Study
  Country: US (occurrence: US)
  Receive Date: 20080315
  Receipt Date: 20130524
  Transmission Date: 20140414
  Serious: Yes (Hospitalization, Other)
  Sender: FDA-Public Use
  Company Number: US-ABBOTT-08P-163-0437646-00

PATIENT
  Age: 64 Year
  Sex: Male
  Weight: 73.55 kg

DRUGS (32)
  1. HUMIRA [Suspect]
     Indication: RHEUMATOID ARTHRITIS
     Route: 058
     Dates: start: 20070925, end: 20130101
  2. HUMIRA [Suspect]
     Route: 058
     Dates: start: 2012, end: 201212
  3. MAGNESIUM CITRATE [Suspect]
     Indication: BOWEL PREPARATION
     Dates: start: 201207, end: 201207
  4. GOLIGHTLY [Suspect]
     Indication: CONSTIPATION
     Dates: start: 201207, end: 201207
  5. METHOTREXATE [Concomitant]
     Indication: RHEUMATOID ARTHRITIS
     Route: 048
     Dates: start: 1992, end: 201212
  6. PREDNISONE [Concomitant]
     Indication: RHEUMATOID ARTHRITIS
     Dosage: 3 MG IN AM, 2 MG IN PM
     Route: 048
     Dates: start: 1992
  7. PREDNISONE [Concomitant]
     Indication: HYPERSENSITIVITY
  8. FOLIC ACID [Concomitant]
     Indication: VITAMIN SUPPLEMENTATION
  9. ZYRTEC [Concomitant]
     Indication: HYPERSENSITIVITY
  10. RHINOCORT [Concomitant]
     Indication: PRODUCT USED FOR UNKNOWN INDICATION
  11. NEXIUM [Concomitant]
     Indication: PRODUCT USED FOR UNKNOWN INDICATION
  12. HYDROCODONE [Concomitant]
     Indication: PRODUCT USED FOR UNKNOWN INDICATION
  13. ALENDRONATE SODIUM [Concomitant]
     Indication: OSTEOARTHRITIS
  14. FLONASE [Concomitant]
     Indication: HYPERSENSITIVITY
  15. ALLERGY INJECTIONS [Concomitant]
     Indication: HYPERSENSITIVITY
  16. LOSARTAN [Concomitant]
     Indication: HYPERTENSION
  17. PANTOPRAZOLE [Concomitant]
     Indication: GASTROOESOPHAGEAL REFLUX DISEASE
  18. UNNAMED MEDICATION [Concomitant]
     Indication: HYPERKERATOSIS
     Route: 061
  19. PROBIOTIC [Concomitant]
     Indication: PROBIOTIC THERAPY
  20. MULTIVITAMIN [Concomitant]
     Indication: VITAMIN SUPPLEMENTATION
  21. TYLENOL [Concomitant]
     Indication: ARTHRALGIA
  22. CALTRATE PLUS [Concomitant]
     Indication: MINERAL SUPPLEMENTATION
  23. VITAMIN D [Concomitant]
     Indication: VITAMIN SUPPLEMENTATION
  24. GUAIFENESIN [Concomitant]
     Indication: SINUS DISORDER
  25. GUAIFENESIN [Concomitant]
     Indication: HYPERSENSITIVITY
  26. FOSAMAX [Concomitant]
     Indication: OSTEOPOROSIS
  27. LIBRAX [Concomitant]
     Indication: PRODUCT USED FOR UNKNOWN INDICATION
  28. BENEFIBER [Concomitant]
     Indication: MEDICAL DIET
  29. CENTRUM SILVER [Concomitant]
     Indication: VITAMIN SUPPLEMENTATION
  30. VITAMIN D [Concomitant]
     Indication: VITAMIN SUPPLEMENTATION
  31. CENTERIZINE [Concomitant]
     Indication: HYPERSENSITIVITY
  32. CARAC [Concomitant]
     Indication: HYPERKERATOSIS

REACTIONS (26)
  - Abnormal faeces [Recovered/Resolved]
  - Basal cell carcinoma [Recovered/Resolved]
  - Frequent bowel movements [Recovered/Resolved]
  - Intestinal obstruction [Recovered/Resolved]
  - Large intestine perforation [Recovered/Resolved]
  - Weight increased [Recovered/Resolved]
  - Decreased appetite [Recovered/Resolved]
  - Blood pressure decreased [Recovered/Resolved]
  - Impaired healing [Recovered/Resolved]
  - Adenocarcinoma of colon [Recovered/Resolved]
  - Incisional hernia [Recovered/Resolved]
  - Basal cell carcinoma [Recovered/Resolved]
  - Squamous cell carcinoma of skin [Recovered/Resolved]
  - Dry skin [Not Recovered/Not Resolved]
  - Weight decreased [Recovered/Resolved]
  - Vision blurred [Not Recovered/Not Resolved]
  - Intestinal mucosal hypertrophy [Recovered/Resolved]
  - Constipation [Recovered/Resolved]
  - Large intestinal stenosis [Recovered/Resolved]
  - Hernia [Recovered/Resolved]
  - Constipation [Recovered/Resolved]
  - Pain in extremity [Not Recovered/Not Resolved]
  - Pain in extremity [Not Recovered/Not Resolved]
  - Diverticular perforation [Unknown]
  - Colon cancer [Unknown]
  - Diverticulitis [Unknown]
